FAERS Safety Report 16811190 (Version 1)
Quarter: 2019Q3

REPORT INFORMATION
  Report Type: Spontaneous
  Country: CA (occurrence: CA)
  Receive Date: 20190916
  Receipt Date: 20190916
  Transmission Date: 20191005
  Serious: Yes (Life-Threatening, Hospitalization, Disabling, Other)
  Sender: FDA-Public Use
  Company Number: CA-FRESENIUS KABI-FK201910074

PATIENT
  Age: 80 Year
  Sex: Male
  Weight: 66 kg

DRUGS (3)
  1. HEPARIN SODIUM (MANUFACTURER UNKNOWN) [Suspect]
     Active Substance: HEPARIN SODIUM
     Indication: VASCULAR INSUFFICIENCY
     Route: 042
  2. HEPARIN SODIUM (MANUFACTURER UNKNOWN) [Suspect]
     Active Substance: HEPARIN SODIUM
     Indication: PERIPHERAL VASCULAR DISORDER
  3. HEPARIN SODIUM (MANUFACTURER UNKNOWN) [Suspect]
     Active Substance: HEPARIN SODIUM
     Indication: ANTICOAGULANT THERAPY

REACTIONS (5)
  - Heparin-induced thrombocytopenia [Recovered/Resolved]
  - Drug ineffective [Recovered/Resolved]
  - Vascular insufficiency [Recovered/Resolved]
  - Condition aggravated [Recovered/Resolved]
  - Leg amputation [Recovered/Resolved]
